FAERS Safety Report 11047315 (Version 1)
Quarter: 2015Q2

REPORT INFORMATION
  Report Type: Spontaneous
  Country: US (occurrence: None)
  Receive Date: 20150417
  Receipt Date: 20150417
  Transmission Date: 20150821
  Serious: No
  Sender: FDA-Public Use
  Company Number: None

PATIENT
  Age: 27 Year
  Sex: Female

DRUGS (1)
  1. METHOTREXATE [Suspect]
     Active Substance: METHOTREXATE
     Dosage: SQ
     Dates: start: 20150202

REACTIONS (5)
  - Blood pressure increased [None]
  - Heart rate increased [None]
  - Dizziness [None]
  - Nausea [None]
  - Weight decreased [None]

NARRATIVE: CASE EVENT DATE: 20150401
